FAERS Safety Report 10224544 (Version 1)
Quarter: 2014Q2

REPORT INFORMATION
  Report Type: Spontaneous
  Country: US (occurrence: US)
  Receive Date: 20140609
  Receipt Date: 20140609
  Transmission Date: 20141212
  Serious: No
  Sender: FDA-Public Use
  Company Number: US-BAYER-2014-081573

PATIENT
  Sex: 0

DRUGS (2)
  1. ALEVE CAPLET [Suspect]
     Indication: ARTHRITIS
     Dosage: UNK
  2. ALEVE CAPLET [Suspect]
     Indication: ARTHRITIS
     Dosage: 6 DF, QD

REACTIONS (2)
  - Intentional product misuse [Unknown]
  - Extra dose administered [Unknown]
